FAERS Safety Report 5654225-8 (Version None)
Quarter: 2008Q1

REPORT INFORMATION
  Report Type: 
  Country: None (occurrence: None)
  Receive Date: 20080305
  Receipt Date: 20080220
  Transmission Date: 20080703
  Serious: Yes (Other)
  Sender: FDA-Public Use
  Company Number: US022774

PATIENT
  Age: 53 Year
  Sex: Female
  Weight: 74.8435 kg

DRUGS (13)
  1. ACTIQ [Suspect]
     Indication: PAIN
     Dosage: 1600 UG TID BUCCAL
     Route: 002
     Dates: start: 20030101, end: 20080207
  2. ACTIQ [Suspect]
     Indication: SYSTEMIC LUPUS ERYTHEMATOSUS
     Dosage: 1600 UG TID BUCCAL
     Route: 002
     Dates: start: 20030101, end: 20080207
  3. PERCOCET [Concomitant]
  4. HYGROTON [Concomitant]
  5. XANAX [Concomitant]
  6. SOMA [Concomitant]
  7. SYNTHROID [Concomitant]
  8. LASIX [Concomitant]
  9. K-DUR 10 [Concomitant]
  10. ZOLOFT [Concomitant]
  11. ASPIRIN [Concomitant]
  12. PREVACID [Concomitant]
  13. DALMANE [Concomitant]

REACTIONS (5)
  - DELIRIUM TREMENS [None]
  - DRUG WITHDRAWAL SYNDROME [None]
  - FEELING ABNORMAL [None]
  - ILL-DEFINED DISORDER [None]
  - TRANSIENT ISCHAEMIC ATTACK [None]
